FAERS Safety Report 9413539 (Version 2)
Quarter: 2013Q3

REPORT INFORMATION
  Report Type: Spontaneous
  Country: FR (occurrence: None)
  Receive Date: 20130610
  Receipt Date: 20130722
  Transmission Date: 20140515
  Serious: Yes (Life-Threatening)
  Sender: FDA-Public Use
  Company Number: 221817

PATIENT
  Age: 79 Year
  Sex: Female

DRUGS (3)
  1. INNOHEP (TINZAPARIN SODIUM) [Suspect]
     Indication: ATRIAL FIBRILLATION
     Route: 058
     Dates: start: 201302, end: 20130325
  2. SUTENT [Suspect]
     Indication: GASTROINTESTINAL STROMAL TUMOUR
     Route: 048
     Dates: start: 20130121, end: 20130325
  3. OLMETEC (OLMESARTAN MEDOXOMIL) [Concomitant]

REACTIONS (2)
  - Cerebral haemorrhage [None]
  - Intraventricular haemorrhage [None]
